FAERS Safety Report 16439487 (Version 4)
Quarter: 2021Q1

REPORT INFORMATION
  Report Type: Spontaneous
  Country: US (occurrence: US)
  Receive Date: 20190617
  Receipt Date: 20210326
  Transmission Date: 20210419
  Serious: Yes (Other)
  Sender: FDA-Public Use
  Company Number: US-PFIZER INC-2019243627

PATIENT
  Age: 60 Year
  Sex: Female

DRUGS (1)
  1. LYRICA [Suspect]
     Active Substance: PREGABALIN
     Indication: NEUROPATHY PERIPHERAL
     Dosage: 50 MG
     Dates: end: 201812

REACTIONS (6)
  - Poor quality sleep [Unknown]
  - Anxiety [Unknown]
  - Blindness [Unknown]
  - Therapeutic product effect incomplete [Unknown]
  - Blood pressure increased [Unknown]
  - Pain [Unknown]
